FAERS Safety Report 17148113 (Version 5)
Quarter: 2025Q1

REPORT INFORMATION
  Report Type: Report from Study
  Country: US (occurrence: US)
  Receive Date: 20191212
  Receipt Date: 20250318
  Transmission Date: 20250409
  Serious: Yes (Other)
  Sender: NOVARTIS
  Company Number: NVSC2019US066086

PATIENT
  Age: 25 Year
  Sex: Male

DRUGS (1)
  1. COSENTYX [Suspect]
     Active Substance: SECUKINUMAB
     Indication: Product used for unknown indication
     Dosage: 300 MG/KG, Q4W
     Route: 065
     Dates: start: 20190424

REACTIONS (2)
  - Cellulitis [Unknown]
  - Otitis media [Unknown]

NARRATIVE: CASE EVENT DATE: 20190501
